FAERS Safety Report 10027228 (Version 2)
Quarter: 2014Q1

REPORT INFORMATION
  Report Type: Spontaneous
  Country: US (occurrence: US)
  Receive Date: 20140321
  Receipt Date: 20140321
  Transmission Date: 20141002
  Serious: No
  Sender: FDA-Public Use
  Company Number: US-TEVA-448777USA

PATIENT
  Sex: Female

DRUGS (5)
  1. ETOPOSIDE [Suspect]
     Indication: SMALL CELL LUNG CANCER
     Route: 042
     Dates: start: 20131120, end: 20131120
  2. DEXAMETHASONE [Concomitant]
     Route: 040
  3. GRANISETRON [Concomitant]
     Route: 048
  4. PALONOSETRON HYDROCHLORIDE [Concomitant]
  5. CARBOPLATIN [Concomitant]

REACTIONS (5)
  - Infusion related reaction [Unknown]
  - Flushing [Unknown]
  - Back pain [Unknown]
  - Nausea [Unknown]
  - Dizziness [Unknown]
